FAERS Safety Report 11147802 (Version 2)
Quarter: 2015Q2

REPORT INFORMATION
  Report Type: Report from Study
  Country: FR (occurrence: FR)
  Receive Date: 20150529
  Receipt Date: 20150612
  Transmission Date: 20150821
  Serious: Yes (Hospitalization, Other)
  Sender: FDA-Public Use
  Company Number: FR-ROCHE-1426005

PATIENT
  Age: 68 Year
  Sex: Female

DRUGS (21)
  1. SMECTA [Concomitant]
     Active Substance: MONTMORILLONITE
  2. CORTANCYL [Concomitant]
     Active Substance: PREDNISONE
     Indication: RHEUMATOID ARTHRITIS
  3. PARACETAMOL/TRAMADOL [Concomitant]
     Active Substance: ACETAMINOPHEN\TRAMADOL
  4. TOCILIZUMAB [Suspect]
     Active Substance: TOCILIZUMAB
     Indication: RHEUMATOID ARTHRITIS
     Dosage: AT 8MG/KG.
     Route: 042
     Dates: start: 20100803
  5. METHOTREXATE SODIUM. [Suspect]
     Active Substance: METHOTREXATE SODIUM
     Indication: RHEUMATOID ARTHRITIS
     Route: 048
  6. OMEPRAZOLE. [Concomitant]
     Active Substance: OMEPRAZOLE
  7. OROCAL (FRANCE) [Concomitant]
  8. TOCILIZUMAB [Suspect]
     Active Substance: TOCILIZUMAB
     Dosage: AT 8MG/KG.
     Route: 042
     Dates: start: 20101001, end: 20120222
  9. RITUXIMAB [Suspect]
     Active Substance: RITUXIMAB
     Indication: RHEUMATOID ARTHRITIS
     Route: 065
  10. TAHOR [Suspect]
     Active Substance: ATORVASTATIN CALCIUM
     Indication: ISCHAEMIC STROKE
     Route: 065
  11. PARIET [Concomitant]
     Active Substance: RABEPRAZOLE SODIUM
  12. FELDENE [Concomitant]
     Active Substance: PIROXICAM
  13. ARIXTRA [Concomitant]
     Active Substance: FONDAPARINUX SODIUM
     Indication: PERITONITIS
     Route: 065
  14. IMODIUM [Concomitant]
     Active Substance: LOPERAMIDE HYDROCHLORIDE
  15. DAFALGAN [Concomitant]
     Active Substance: ACETAMINOPHEN
  16. UVEDOSE [Concomitant]
     Active Substance: CHOLECALCIFEROL
  17. ETANERCEPT [Suspect]
     Active Substance: ETANERCEPT
     Indication: RHEUMATOID ARTHRITIS
     Route: 058
     Dates: start: 2008, end: 2008
  18. TARDYFERON (FRANCE) [Concomitant]
  19. SPECIAFOLDINE [Concomitant]
     Active Substance: FOLIC ACID
     Route: 065
  20. TOCILIZUMAB [Suspect]
     Active Substance: TOCILIZUMAB
     Dosage: AT 8MG/KG.
     Route: 042
     Dates: start: 20100903
  21. FLUDEX (FRANCE) [Concomitant]

REACTIONS (27)
  - Epstein-Barr virus infection [Not Recovered/Not Resolved]
  - Pulmonary embolism [Recovered/Resolved]
  - Leukoencephalopathy [Recovered/Resolved]
  - Cholestasis [Recovered/Resolved]
  - Small intestinal perforation [Recovered/Resolved]
  - Small intestine ulcer [Recovered/Resolved]
  - Neck pain [Unknown]
  - Arthralgia [Unknown]
  - Basal cell carcinoma [Unknown]
  - Ischaemic stroke [Recovered/Resolved]
  - Cytomegalovirus colitis [Recovered/Resolved]
  - Diverticulitis [Not Recovered/Not Resolved]
  - Dehydration [Recovered/Resolved]
  - Hepatocellular injury [Recovered/Resolved]
  - Lymphoma [Not Recovered/Not Resolved]
  - Abscess [Unknown]
  - Lymphadenopathy [Unknown]
  - Peritonitis [Unknown]
  - Hepatocellular injury [Unknown]
  - Anaemia [Unknown]
  - Immunosuppression [Not Recovered/Not Resolved]
  - Diffuse large B-cell lymphoma [Recovered/Resolved]
  - Cytomegalovirus infection [Recovered/Resolved]
  - Splenic cyst [Recovered/Resolved]
  - Lymphopenia [Not Recovered/Not Resolved]
  - Intestinal perforation [Recovered/Resolved]
  - Weight decreased [Unknown]

NARRATIVE: CASE EVENT DATE: 201001
